FAERS Safety Report 22327011 (Version 2)
Quarter: 2025Q3

REPORT INFORMATION
  Report Type: Spontaneous
  Country: US (occurrence: US)
  Receive Date: 20230516
  Receipt Date: 20250703
  Transmission Date: 20251020
  Serious: No
  Sender: RADIUS PHARM
  Company Number: US-RADIUS HEALTH INC.-2022US002876

PATIENT
  Age: 83 Year
  Sex: Female

DRUGS (3)
  1. TYMLOS [Suspect]
     Active Substance: ABALOPARATIDE
     Indication: Senile osteoporosis
     Route: 058
     Dates: start: 20241215
  2. TYMLOS [Suspect]
     Active Substance: ABALOPARATIDE
     Route: 058
     Dates: start: 20250131
  3. TYMLOS [Suspect]
     Active Substance: ABALOPARATIDE
     Route: 058
     Dates: start: 20220610

REACTIONS (10)
  - Dizziness [Recovering/Resolving]
  - Nausea [Unknown]
  - Palpitations [Not Recovered/Not Resolved]
  - Supraventricular extrasystoles [Unknown]
  - Blood potassium decreased [Unknown]
  - Blood magnesium decreased [Unknown]
  - Fatigue [Unknown]
  - Product use complaint [Not Recovered/Not Resolved]
  - Intentional product misuse [Unknown]
  - Limb mass [Unknown]

NARRATIVE: CASE EVENT DATE: 20220610
